FAERS Safety Report 7385951-0 (Version None)
Quarter: 2011Q1

REPORT INFORMATION
  Report Type: 
  Country: None (occurrence: None)
  Receive Date: 20110331
  Receipt Date: 20110316
  Transmission Date: 20110831
  Serious: Yes (Hospitalization, Other)
  Sender: FDA-Public Use
  Company Number: TW-JNJFOC-20110311543

PATIENT
  Age: 59 Year
  Sex: Male

DRUGS (3)
  1. KEPPRA [Suspect]
     Indication: CONVULSION
     Route: 065
  2. CEFAZOLIN [Suspect]
     Indication: PYREXIA
     Route: 065
  3. TOPAMAX [Suspect]
     Indication: CONVULSION
     Route: 048

REACTIONS (4)
  - PYREXIA [None]
  - DRUG HYPERSENSITIVITY [None]
  - SCRATCH [None]
  - GASTROINTESTINAL HAEMORRHAGE [None]
